FAERS Safety Report 9880422 (Version 1)
Quarter: 2014Q1

REPORT INFORMATION
  Report Type: Spontaneous
  Country: US (occurrence: None)
  Receive Date: 20140204
  Receipt Date: 20140204
  Transmission Date: 20141002
  Serious: Yes (Death)
  Sender: FDA-Public Use
  Company Number: UCM201401-000003

PATIENT
  Age: 2 Year
  Sex: Female

DRUGS (1)
  1. CLONIDINE [Suspect]

REACTIONS (5)
  - Unresponsive to stimuli [None]
  - Aspiration [None]
  - General physical health deterioration [None]
  - Accidental exposure to product by child [None]
  - Overdose [None]
